FAERS Safety Report 10188793 (Version 1)
Quarter: 2014Q2

REPORT INFORMATION
  Report Type: Spontaneous
  Country: US (occurrence: US)
  Receive Date: 20140522
  Receipt Date: 20140522
  Transmission Date: 20141212
  Serious: No
  Sender: FDA-Public Use
  Company Number: US-SA-2014SA023378

PATIENT
  Age: 71 Year
  Sex: Female
  Weight: 106 kg

DRUGS (9)
  1. LANTUS SOLOSTAR [Suspect]
     Indication: TYPE 2 DIABETES MELLITUS
     Dosage: DOSE:46 UNIT(S)
     Route: 065
     Dates: start: 2010
  2. LANTUS SOLOSTAR [Suspect]
     Indication: TYPE 2 DIABETES MELLITUS
     Dosage: DOSE:46 UNIT(S)
     Route: 065
     Dates: start: 2010
  3. SYNTHROID [Concomitant]
     Indication: THYROID DISORDER
  4. GLIPIZIDE [Concomitant]
  5. CYMBALTA [Concomitant]
  6. RAMIPRIL [Concomitant]
  7. FUROSEMIDE [Concomitant]
  8. METOPROLOL [Concomitant]
  9. SOLOSTAR [Concomitant]

REACTIONS (1)
  - Insomnia [Unknown]
